FAERS Safety Report 12988302 (Version 1)
Quarter: 2016Q4

REPORT INFORMATION
  Report Type: Report from Study
  Country: None (occurrence: BR)
  Receive Date: 20161130
  Receipt Date: 20161130
  Transmission Date: 20170207
  Serious: Yes (Disabling)
  Sender: FDA-Public Use
  Company Number: BR-ABBVIE-16K-020-1793195-00

PATIENT
  Age: 52 Year
  Sex: Female
  Weight: 89 kg

DRUGS (7)
  1. PREDSIM [Concomitant]
     Active Substance: PREDNISOLONE
     Indication: PRODUCT USED FOR UNKNOWN INDICATION
  2. ALDACTONE [Concomitant]
     Active Substance: SPIRONOLACTONE
     Indication: HYPERTENSION
  3. VITAMIN D [Concomitant]
     Active Substance: CHOLECALCIFEROL
     Indication: PRODUCT USED FOR UNKNOWN INDICATION
  4. DILTIAZEM. [Concomitant]
     Active Substance: DILTIAZEM
     Indication: HYPERTENSION
  5. HUMIRA [Suspect]
     Active Substance: ADALIMUMAB
     Indication: RHEUMATOID ARTHRITIS
     Route: 058
     Dates: start: 20161109, end: 20161109
  6. OMEGA 3 [Concomitant]
     Active Substance: OMEGA-3 FATTY ACIDS
     Indication: PRODUCT USED FOR UNKNOWN INDICATION
  7. METHOTREXATE. [Concomitant]
     Active Substance: METHOTREXATE
     Indication: PRODUCT USED FOR UNKNOWN INDICATION

REACTIONS (19)
  - Ocular hyperaemia [Unknown]
  - Dysuria [Recovering/Resolving]
  - Anorectal discomfort [Recovering/Resolving]
  - Eye irritation [Recovering/Resolving]
  - Gingival bleeding [Recovered/Resolved]
  - Blindness transient [Recovered/Resolved]
  - Paraesthesia [Recovered/Resolved]
  - Oral discomfort [Recovering/Resolving]
  - Dysphonia [Not Recovered/Not Resolved]
  - Skin discolouration [Recovering/Resolving]
  - Throat irritation [Recovering/Resolving]
  - Arthralgia [Not Recovered/Not Resolved]
  - Dry eye [Recovering/Resolving]
  - Stomatitis [Recovering/Resolving]
  - Mucosal dryness [Recovering/Resolving]
  - Sjogren^s syndrome [Unknown]
  - Dyspepsia [Recovering/Resolving]
  - Genital burning sensation [Recovering/Resolving]
  - Dysbacteriosis [Unknown]

NARRATIVE: CASE EVENT DATE: 201611
